FAERS Safety Report 7455019-3 (Version None)
Quarter: 2011Q2

REPORT INFORMATION
  Report Type: 
  Country: None (occurrence: None)
  Receive Date: 20110503
  Receipt Date: 20110429
  Transmission Date: 20111010
  Serious: Yes (Other)
  Sender: FDA-Public Use
  Company Number: TW-PFIZER INC-2011092216

PATIENT
  Sex: Female

DRUGS (1)
  1. XANAX [Suspect]
     Indication: INSOMNIA
     Dosage: 0.5 MG, UNK
     Route: 048

REACTIONS (6)
  - MEMORY IMPAIRMENT [None]
  - INAPPROPRIATE AFFECT [None]
  - GASTROINTESTINAL MOTILITY DISORDER [None]
  - VISION BLURRED [None]
  - IRRITABILITY [None]
  - MUSCULOSKELETAL STIFFNESS [None]
